FAERS Safety Report 6563245-0 (Version None)
Quarter: 2010Q1

REPORT INFORMATION
  Report Type: 
  Country: None (occurrence: None)
  Receive Date: 20100130
  Receipt Date: 20091202
  Transmission Date: 20100710
  Serious: No
  Sender: FDA-Public Use
  Company Number: US-ABBOTT-09P-163-0613067-00

PATIENT
  Age: 20 Year
  Sex: Male

DRUGS (2)
  1. HUMIRA [Suspect]
     Indication: COLITIS ULCERATIVE
     Dosage: 160 MG LOADING DOSE
     Dates: start: 20091123, end: 20091123
  2. HUMIRA [Suspect]
     Dosage: 80 MG LOADING DOSE
     Dates: start: 20091201, end: 20091201

REACTIONS (1)
  - COLITIS ULCERATIVE [None]
